FAERS Safety Report 9189377 (Version 1)
Quarter: 2013Q1

REPORT INFORMATION
  Report Type: Spontaneous
  Country: FR (occurrence: None)
  Receive Date: 20120702
  Receipt Date: 20120702
  Transmission Date: 20140127
  Serious: Yes (Hospitalization)
  Sender: FDA-Public Use
  Company Number: 015389

PATIENT
  Sex: Male

DRUGS (1)
  1. PRIALT (ZICONOTIDE INTRATHECAL INFUSION) SOLUTION [Suspect]
     Dosage: 0.3 UG, ONCE/HOUR, INTRATHECAL
     Route: 037
     Dates: start: 20100118

REACTIONS (3)
  - Hallucination [None]
  - Disorientation [None]
  - Vertigo [None]
